FAERS Safety Report 5706885-0 (Version None)
Quarter: 2008Q2

REPORT INFORMATION
  Report Type: 
  Country: None (occurrence: None)
  Receive Date: 20080416
  Receipt Date: 20080407
  Transmission Date: 20081010
  Serious: No
  Sender: FDA-Public Use
  Company Number: FR-PFIZER INC-2008016097

PATIENT
  Age: 26 Year
  Sex: Female

DRUGS (4)
  1. VORICONAZOLE [Suspect]
     Indication: PROPHYLAXIS
  2. TACROLIMUS [Concomitant]
  3. MYCOPHENOLATE MOFETIL [Concomitant]
  4. PREDNISONE [Concomitant]

REACTIONS (1)
  - NO ADVERSE EVENT [None]
